FAERS Safety Report 4362798-0 (Version None)
Quarter: 2004Q2

REPORT INFORMATION
  Report Type: 
  Country: None (occurrence: None)
  Receive Date: 20040518
  Receipt Date: 20040505
  Transmission Date: 20050107
  Serious: Yes (Other)
  Sender: FDA-Public Use
  Company Number: US-SHR-04-023355

PATIENT
  Age: 34 Year
  Sex: Female
  Weight: 59.9 kg

DRUGS (2)
  1. YASMIN [Suspect]
     Indication: ORAL CONTRACEPTION
     Dosage: 1 TAB (S), 1X/DAY, ORAL
     Route: 048
     Dates: start: 20021002
  2. BENADRYL ^PFIZER WARNER-LAMBERT) (DIPHENHYDRAMINE HYDROCHLORIDE) [Concomitant]

REACTIONS (9)
  - ANGIONEUROTIC OEDEMA [None]
  - ANTINUCLEAR ANTIBODY POSITIVE [None]
  - ANXIETY [None]
  - DEPRESSION [None]
  - DRY THROAT [None]
  - GLOSSODYNIA [None]
  - HISTONE ANTIBODY POSITIVE [None]
  - NUCLEAR MAGNETIC RESONANCE IMAGING BRAIN ABNORMAL [None]
  - ORAL DISCOMFORT [None]
